FAERS Safety Report 7690266-7 (Version None)
Quarter: 2011Q3

REPORT INFORMATION
  Report Type: 
  Country: None (occurrence: None)
  Receive Date: 20110818
  Receipt Date: 20110815
  Transmission Date: 20111222
  Serious: No
  Sender: FDA-Public Use
  Company Number: US-PFIZER INC-2011187426

PATIENT

DRUGS (6)
  1. EFFEXOR XR [Suspect]
     Dosage: 75 UNK, UNK
     Dates: start: 20110630, end: 20110721
  2. EFFEXOR XR [Suspect]
     Dosage: 37.5 UNK, UNK
     Dates: start: 20110510, end: 20110625
  3. EFFEXOR XR [Suspect]
     Dosage: 75 UNK, 2X/DAY
     Dates: start: 20110722, end: 20110806
  4. EFFEXOR XR [Suspect]
     Dosage: 75 IN THE MORNING, 35 AT NIGHT
     Dates: start: 20110628, end: 20110628
  5. EFFEXOR XR [Suspect]
     Dosage: 75 UNK, UNK
     Dates: start: 20110626, end: 20110626
  6. EFFEXOR XR [Suspect]
     Dosage: 35 IN THE MORNING
     Dates: start: 20110629, end: 20110629

REACTIONS (3)
  - PARAESTHESIA [None]
  - DRUG WITHDRAWAL SYNDROME [None]
  - VERTIGO [None]
